FAERS Safety Report 17518292 (Version 5)
Quarter: 2025Q4

REPORT INFORMATION
  Report Type: Spontaneous
  Country: EU (occurrence: EU)
  Receive Date: 20200309
  Receipt Date: 20251024
  Transmission Date: 20260117
  Serious: Yes (Other)
  Sender: MYLAN
  Company Number: EU-BAUSCH-BL-2020-002536

PATIENT
  Age: 16 Year
  Sex: Male

DRUGS (20)
  1. CYCLOSPORINE [Suspect]
     Active Substance: CYCLOSPORINE
     Indication: Immunosuppressant drug therapy
     Dosage: DOSE REDUCED TO 50 PERCENT
  2. CYCLOSPORINE [Suspect]
     Active Substance: CYCLOSPORINE
     Dosage: DOSE REDUCED TO 50 PERCENT
  3. CYCLOSPORINE [Suspect]
     Active Substance: CYCLOSPORINE
     Dosage: DOSE REDUCED TO 50 PERCENT
     Route: 065
  4. CYCLOSPORINE [Suspect]
     Active Substance: CYCLOSPORINE
     Dosage: DOSE REDUCED TO 50 PERCENT
     Route: 065
  5. CYCLOSPORINE [Suspect]
     Active Substance: CYCLOSPORINE
     Dosage: UNK
  6. CYCLOSPORINE [Suspect]
     Active Substance: CYCLOSPORINE
     Dosage: UNK
  7. CYCLOSPORINE [Suspect]
     Active Substance: CYCLOSPORINE
     Dosage: UNK
     Route: 065
  8. CYCLOSPORINE [Suspect]
     Active Substance: CYCLOSPORINE
     Dosage: UNK
     Route: 065
  9. PREDNISOLONE [Suspect]
     Active Substance: PREDNISOLONE
     Indication: Immunosuppressant drug therapy
     Dosage: UNK
  10. PREDNISOLONE [Suspect]
     Active Substance: PREDNISOLONE
     Dosage: UNK
  11. PREDNISOLONE [Suspect]
     Active Substance: PREDNISOLONE
     Dosage: UNK
     Route: 065
  12. PREDNISOLONE [Suspect]
     Active Substance: PREDNISOLONE
     Dosage: UNK
     Route: 065
  13. PREDNISOLONE [Suspect]
     Active Substance: PREDNISOLONE
     Dosage: GRADUALLY WITHDRAWN AND STOPPED 9 MONTHS AFTER TRANSPLANTATION
  14. PREDNISOLONE [Suspect]
     Active Substance: PREDNISOLONE
     Dosage: GRADUALLY WITHDRAWN AND STOPPED 9 MONTHS AFTER TRANSPLANTATION
  15. PREDNISOLONE [Suspect]
     Active Substance: PREDNISOLONE
     Dosage: GRADUALLY WITHDRAWN AND STOPPED 9 MONTHS AFTER TRANSPLANTATION
     Route: 065
  16. PREDNISOLONE [Suspect]
     Active Substance: PREDNISOLONE
     Dosage: GRADUALLY WITHDRAWN AND STOPPED 9 MONTHS AFTER TRANSPLANTATION
     Route: 065
  17. EVEROLIMUS [Suspect]
     Active Substance: EVEROLIMUS
     Indication: Immunosuppressant drug therapy
     Dosage: SHORTLY AFTER ONSET OF VIRAEMIA, EVEROLIMUS WAS INITIATED
  18. EVEROLIMUS [Suspect]
     Active Substance: EVEROLIMUS
     Dosage: SHORTLY AFTER ONSET OF VIRAEMIA, EVEROLIMUS WAS INITIATED
     Route: 065
  19. EVEROLIMUS [Suspect]
     Active Substance: EVEROLIMUS
     Dosage: SHORTLY AFTER ONSET OF VIRAEMIA, EVEROLIMUS WAS INITIATED
     Route: 065
  20. EVEROLIMUS [Suspect]
     Active Substance: EVEROLIMUS
     Dosage: SHORTLY AFTER ONSET OF VIRAEMIA, EVEROLIMUS WAS INITIATED

REACTIONS (5)
  - Viraemia [Recovered/Resolved]
  - Polyomavirus-associated nephropathy [Recovering/Resolving]
  - Polyomavirus viraemia [Recovered/Resolved]
  - BK virus infection [Recovered/Resolved]
  - Medication error [Unknown]
